FAERS Safety Report 24237323 (Version 2)
Quarter: 2024Q3

REPORT INFORMATION
  Report Type: Spontaneous
  Country: US (occurrence: US)
  Receive Date: 20240822
  Receipt Date: 20240830
  Transmission Date: 20241017
  Serious: No
  Sender: BRISTOL MYERS SQUIBB
  Company Number: US-BRISTOL-MYERS SQUIBB COMPANY-2024-133210

PATIENT
  Age: 58 Year
  Sex: Male

DRUGS (8)
  1. TRIAMCINOLONE ACETONIDE [Suspect]
     Active Substance: TRIAMCINOLONE ACETONIDE
     Indication: Intervertebral disc protrusion
     Dosage: LEFT L4-L5 TRANSFORAMINAL ESI
  2. TRIAMCINOLONE ACETONIDE [Suspect]
     Active Substance: TRIAMCINOLONE ACETONIDE
     Indication: Vertebral lateral recess stenosis
  3. TRIAMCINOLONE ACETONIDE [Suspect]
     Active Substance: TRIAMCINOLONE ACETONIDE
     Indication: Spinal decompression
  4. TRIAMCINOLONE ACETONIDE [Suspect]
     Active Substance: TRIAMCINOLONE ACETONIDE
     Indication: Vertebral foraminal stenosis
  5. BUPIVACAINE [Suspect]
     Active Substance: BUPIVACAINE
     Indication: Intervertebral disc protrusion
     Dosage: TRANSFORAMINAL, LEFT L4-L5 TRANSFORAMINAL ESI CONSISTING OF A MIXTURE OF 1 ML OF 0.5% BUPIVACAINE
  6. BUPIVACAINE [Suspect]
     Active Substance: BUPIVACAINE
     Indication: Vertebral foraminal stenosis
  7. BUPIVACAINE [Suspect]
     Active Substance: BUPIVACAINE
     Indication: Spinal cord compression
  8. BUPIVACAINE [Suspect]
     Active Substance: BUPIVACAINE
     Indication: Vertebral lateral recess stenosis

REACTIONS (2)
  - Depression [Unknown]
  - Off label use [Unknown]
